FAERS Safety Report 25766568 (Version 1)
Quarter: 2025Q3

REPORT INFORMATION
  Report Type: Spontaneous
  Country: US (occurrence: None)
  Receive Date: 20250905
  Receipt Date: 20250905
  Transmission Date: 20251020
  Serious: No
  Sender: FDA-CTU
  Company Number: None

PATIENT
  Age: 46 Year
  Sex: Female
  Weight: 60.3 kg

DRUGS (4)
  1. FLUOROURACIL [Suspect]
     Active Substance: FLUOROURACIL
     Dates: start: 20250813
  2. CAMPTOSAR [Suspect]
     Active Substance: IRINOTECAN HYDROCHLORIDE
     Dates: start: 20250811
  3. ELOXATIN [Suspect]
     Active Substance: OXALIPLATIN
     Dates: start: 20250811
  4. LEUCOVORIN [Suspect]
     Active Substance: LEUCOVORIN\LEUCOVORIN CALCIUM

REACTIONS (1)
  - Blood potassium decreased [None]

NARRATIVE: CASE EVENT DATE: 20250822
